FAERS Safety Report 17566342 (Version 2)
Quarter: 2021Q1

REPORT INFORMATION
  Report Type: Spontaneous
  Country: CA (occurrence: CA)
  Receive Date: 20200320
  Receipt Date: 20210313
  Transmission Date: 20210419
  Serious: Yes (Hospitalization, Other)
  Sender: FDA-Public Use
  Company Number: CA-OTSUKA-2020_007562

PATIENT
  Sex: Male

DRUGS (31)
  1. LITHIUM CARBONATE. [Suspect]
     Active Substance: LITHIUM CARBONATE
     Indication: SCHIZOPHRENIA
     Dosage: 1050 MG, UNK
     Route: 065
  2. RISPERIDONE. [Suspect]
     Active Substance: RISPERIDONE
     Dosage: 8 MG
     Route: 065
  3. GABAPENTIN. [Suspect]
     Active Substance: GABAPENTIN
     Dosage: 600 MG
     Route: 065
  4. GABAPENTIN. [Suspect]
     Active Substance: GABAPENTIN
     Dosage: 1600 MG
     Route: 065
  5. OLANZAPINE. [Suspect]
     Active Substance: OLANZAPINE
     Dosage: 20 MG
     Route: 065
  6. PERPHENAZINE. [Suspect]
     Active Substance: PERPHENAZINE
     Indication: SCHIZOPHRENIA
     Dosage: 32 MG
     Route: 065
  7. SAPHRIS [Suspect]
     Active Substance: ASENAPINE MALEATE
     Indication: SCHIZOPHRENIA
     Dosage: UNK
     Route: 065
  8. LITHIUM CARBONATE. [Suspect]
     Active Substance: LITHIUM CARBONATE
     Dosage: UNK
     Route: 065
  9. LITHIUM CARBONATE. [Suspect]
     Active Substance: LITHIUM CARBONATE
     Dosage: 1800 MG
     Route: 065
  10. RISPERIDONE. [Suspect]
     Active Substance: RISPERIDONE
     Dosage: 4 MG
     Route: 065
  11. TRIFLUOPERAZINE [Suspect]
     Active Substance: TRIFLUOPERAZINE HYDROCHLORIDE
     Indication: SCHIZOPHRENIA
     Dosage: 50 MG, UNK
     Route: 065
  12. AMISULPRIDE [Suspect]
     Active Substance: AMISULPRIDE
     Indication: SCHIZOPHRENIA
     Dosage: 1200 MG, UNK
     Route: 065
  13. CITALOPRAM [Suspect]
     Active Substance: CITALOPRAM HYDROBROMIDE
     Indication: SCHIZOPHRENIA
     Dosage: 80 MG, UNK
     Route: 065
  14. FLUPENTIXOL [Suspect]
     Active Substance: FLUPENTIXOL
     Indication: SCHIZOPHRENIA
     Dosage: 6 MG, UNK
     Route: 065
  15. HALOPERIDOL DECANOATE. [Suspect]
     Active Substance: HALOPERIDOL DECANOATE
     Indication: SCHIZOPHRENIA
     Dosage: 6 MG
     Route: 065
  16. OLANZAPINE. [Suspect]
     Active Substance: OLANZAPINE
     Indication: SCHIZOPHRENIA
     Dosage: 15 MG, UNK
     Route: 065
  17. RISPERIDONE. [Suspect]
     Active Substance: RISPERIDONE
     Indication: SCHIZOPHRENIA
     Dosage: 3 MG, UNK
     Route: 065
  18. FLUOXETINE HYDROCHLORIDE. [Suspect]
     Active Substance: FLUOXETINE HYDROCHLORIDE
     Indication: SCHIZOPHRENIA
     Dosage: 80 MG, UNK
     Route: 065
  19. LOXAPINE SUCCINATE. [Suspect]
     Active Substance: LOXAPINE SUCCINATE
     Dosage: 200 MG
     Route: 065
  20. THIORIDAZINE [Suspect]
     Active Substance: THIORIDAZINE
     Indication: SCHIZOPHRENIA
     Dosage: UNK
     Route: 048
  21. HALOPERIDOL DECANOATE. [Suspect]
     Active Substance: HALOPERIDOL DECANOATE
     Dosage: 5 MG, UNK
     Route: 065
  22. OLANZAPINE. [Suspect]
     Active Substance: OLANZAPINE
     Dosage: 40 MG
     Route: 065
  23. ZELDOX [Suspect]
     Active Substance: ZIPRASIDONE
     Indication: SCHIZOPHRENIA
     Dosage: 100 MG, UNK
     Route: 065
  24. VALPROATE SODIUM. [Concomitant]
     Active Substance: VALPROATE SODIUM
     Indication: SCHIZOPHRENIA
     Dosage: UNK
     Route: 065
  25. CLOMIPRAMINE [Suspect]
     Active Substance: CLOMIPRAMINE
     Indication: SCHIZOPHRENIA
     Dosage: 250 MG, UNK
     Route: 065
  26. CLOZAPINE. [Suspect]
     Active Substance: CLOZAPINE
     Indication: SCHIZOPHRENIA
     Dosage: 350 MG, UNK
     Route: 065
  27. GABAPENTIN. [Suspect]
     Active Substance: GABAPENTIN
     Indication: SCHIZOPHRENIA
     Dosage: 1800 MG
     Route: 065
  28. LOXAPINE SUCCINATE. [Suspect]
     Active Substance: LOXAPINE SUCCINATE
     Dosage: 75 MG
     Route: 065
  29. QUETIAPINE FUMARATE. [Suspect]
     Active Substance: QUETIAPINE FUMARATE
     Indication: SCHIZOPHRENIA
     Dosage: 600 MG, UNK
     Route: 048
  30. ARIPIPRAZOLE. [Suspect]
     Active Substance: ARIPIPRAZOLE
     Indication: SCHIZOPHRENIA
     Dosage: 30 MG, UNK
     Route: 065
  31. LOXAPINE SUCCINATE. [Suspect]
     Active Substance: LOXAPINE SUCCINATE
     Indication: SCHIZOPHRENIA
     Dosage: 50 MG, UNK
     Route: 065

REACTIONS (13)
  - Suicide attempt [Unknown]
  - Therapeutic product effect variable [Unknown]
  - Antipsychotic drug level below therapeutic [Unknown]
  - Obsessive-compulsive disorder [Unknown]
  - Euphoric mood [Unknown]
  - Leukopenia [Unknown]
  - Weight increased [Unknown]
  - Therapeutic product effect incomplete [Unknown]
  - Toxicity to various agents [Unknown]
  - Drug ineffective [Unknown]
  - Disinhibition [Unknown]
  - Increased appetite [Unknown]
  - Akathisia [Unknown]
